FAERS Safety Report 5319953-2 (Version None)
Quarter: 2007Q1

REPORT INFORMATION
  Report Type: 
  Country: None (occurrence: None)
  Receive Date: 20070201
  Receipt Date: 20060508
  Transmission Date: 20070707
  Serious: Yes (Hospitalization)
  Sender: FDA-Public Use
  Company Number: 2006BH000335

PATIENT
  Age: 58 Year
  Sex: Male
  Weight: 113 kg

DRUGS (7)
  1. DIANEAL PD4, ULTRABAG CONTAINER [Suspect]
     Indication: RENAL FAILURE CHRONIC
     Dosage: 3 L; IP
     Route: 033
     Dates: start: 20040510, end: 20050728
  2. ASPIRIN [Concomitant]
  3. LIPITOR [Concomitant]
  4. PHOSLO [Concomitant]
  5. INSULIN [Concomitant]
  6. OXYCODONE HCL [Concomitant]
  7. ROCALTROL [Concomitant]

REACTIONS (3)
  - ENTEROCOCCAL INFECTION [None]
  - ESCHERICHIA INFECTION [None]
  - PERITONITIS BACTERIAL [None]
